FAERS Safety Report 4678869-5 (Version None)
Quarter: 2005Q2

REPORT INFORMATION
  Report Type: 
  Country: None (occurrence: None)
  Receive Date: 20050531
  Receipt Date: 20050517
  Transmission Date: 20051028
  Serious: Yes (Hospitalization)
  Sender: FDA-Public Use
  Company Number: 2005076116

PATIENT
  Age: 80 Year
  Sex: Female
  Weight: 47.6277 kg

DRUGS (4)
  1. XALATAN [Suspect]
     Indication: GLAUCOMA
     Dosage: 2 DROP (1 IN 1 D), OPHYTHALMIC
     Route: 047
     Dates: start: 20030101
  2. PREDNISONE (PREDNISONE) [Concomitant]
  3. COZAAR [Concomitant]
  4. LIPITOR [Concomitant]

REACTIONS (11)
  - BURNING SENSATION [None]
  - DRUG HYPERSENSITIVITY [None]
  - DRY MOUTH [None]
  - EYE IRRITATION [None]
  - HIP ARTHROPLASTY [None]
  - NASAL CONGESTION [None]
  - NASAL DISCOMFORT [None]
  - OCULAR HYPERAEMIA [None]
  - PHARMACEUTICAL PRODUCT COMPLAINT [None]
  - SINUSITIS [None]
  - SNEEZING [None]
